FAERS Safety Report 12869825 (Version 1)
Quarter: 2016Q4

REPORT INFORMATION
  Report Type: Report from Study
  Country: US (occurrence: US)
  Receive Date: 20161020
  Receipt Date: 20161020
  Transmission Date: 20170207
  Serious: No
  Sender: FDA-Public Use
  Company Number: US-AMGEN-USASL2016118723

PATIENT
  Age: 26 Year
  Sex: Female
  Weight: 89.84 kg

DRUGS (2)
  1. CORLANOR [Suspect]
     Active Substance: IVABRADINE HYDROCHLORIDE
     Indication: CARDIAC FAILURE CONGESTIVE
     Dosage: 5 MG, BID
     Route: 048
  2. THERMOTABS [Concomitant]
     Dosage: 1 DF, QID 287 MG, 180 MG, AND 15 MG.
     Route: 048

REACTIONS (1)
  - Off label use [Unknown]
